FAERS Safety Report 4364577-7 (Version None)
Quarter: 2004Q2

REPORT INFORMATION
  Report Type: 
  Country: None (occurrence: None)
  Receive Date: 20040521
  Receipt Date: 20040506
  Transmission Date: 20050107
  Serious: No
  Sender: FDA-Public Use
  Company Number: 02100-JPN-04-0103

PATIENT
  Age: 59 Year
  Sex: Female

DRUGS (13)
  1. CILOSTAZOL [Suspect]
     Indication: POSTOPERATIVE CARE
     Dosage: 100 MG ORAL
     Route: 048
  2. SULTAMICILLIN TOSILATE [Suspect]
     Indication: POSTOPERATIVE CARE
     Dosage: 1125 MG ORAL
     Route: 048
  3. OMEPRAZOLE [Concomitant]
  4. CALCIUM CARBONATE [Concomitant]
  5. CEFAZOLIN SODIUM [Concomitant]
  6. TEPRENONE [Concomitant]
  7. FOSFOMYCIN SODIUM [Concomitant]
  8. REBAMIPIDE [Concomitant]
  9. CARVEDILOL [Concomitant]
  10. GLYCERYL TRINITRATE [Concomitant]
  11. CARBAOZOCHROME SODIUM SULFONATE [Concomitant]
  12. DOXAZOSIN MESYLATE [Concomitant]
  13. FUROSEMIDE [Concomitant]

REACTIONS (7)
  - BLOOD DISORDER [None]
  - EOSINOPHIL COUNT INCREASED [None]
  - NEPHROGENIC ANAEMIA [None]
  - PLATELET COUNT DECREASED [None]
  - POST PROCEDURAL COMPLICATION [None]
  - PYREXIA [None]
  - WHITE BLOOD CELL COUNT DECREASED [None]
